FAERS Safety Report 7384661-3 (Version None)
Quarter: 2011Q1

REPORT INFORMATION
  Report Type: 
  Country: None (occurrence: None)
  Receive Date: 20110330
  Receipt Date: 20110301
  Transmission Date: 20110831
  Serious: No
  Sender: FDA-Public Use
  Company Number: US-BAYER-2011-019815

PATIENT
  Sex: Male
  Weight: 175 kg

DRUGS (1)
  1. ALEVE (CAPLET) [Suspect]
     Indication: ANALGESIC THERAPY
     Dosage: 880 MG, PRN
     Route: 048
     Dates: start: 20110301

REACTIONS (1)
  - NO ADVERSE EVENT [None]
